FAERS Safety Report 5018504-X (Version None)
Quarter: 2006Q2

REPORT INFORMATION
  Report Type: 
  Country: None (occurrence: None)
  Receive Date: 20060530
  Receipt Date: 20060519
  Transmission Date: 20061013
  Serious: Yes (Other)
  Sender: FDA-Public Use
  Company Number: 225211

PATIENT
  Age: 38 Year
  Sex: Female
  Weight: 117.9 kg

DRUGS (12)
  1. XOLAIR [Suspect]
     Indication: ASTHMA
     Dosage: 300 MG, 1/MONTH, SUBCUTANEOUS
     Route: 058
     Dates: start: 20040311, end: 20060503
  2. PREDNISONE TAB [Concomitant]
  3. ZYRTEC [Concomitant]
  4. RHINOCORT AQUA (BUDESONIDE) [Concomitant]
  5. ASTELIN [Concomitant]
  6. PATANOL [Concomitant]
  7. XOPENEX [Concomitant]
  8. ALBUTEROL (ALBUTEROL/ALBUTEROL SULFATE) [Concomitant]
  9. COMBIVENT (ALBUTEROL, ALBUTEROL SULFATE, IPRATROPIUM BROMIDE) [Concomitant]
  10. QVAR 40 [Concomitant]
  11. ZYFLO [Concomitant]
  12. FORADIL [Concomitant]

REACTIONS (4)
  - COUGH [None]
  - INJECTION SITE PAIN [None]
  - TREMOR [None]
  - WHEEZING [None]
